FAERS Safety Report 10063403 (Version 3)
Quarter: 2014Q3

REPORT INFORMATION
  Report Type: Spontaneous
  Country: JP (occurrence: JP)
  Receive Date: 20140407
  Receipt Date: 20140709
  Transmission Date: 20150326
  Serious: Yes (Hospitalization, Other)
  Sender: FDA-Public Use
  Company Number: JP-PFIZER INC-2014093629

PATIENT
  Age: 73 Year
  Sex: Female

DRUGS (17)
  1. MONTELUKAST [Concomitant]
     Active Substance: MONTELUKAST SODIUM
  2. MUCOSOLVAN [Concomitant]
     Active Substance: AMBROXOL\CLENBUTEROL
  3. ASVERIN (TIPEPIDINE HIBENZATE) [Concomitant]
     Active Substance: TIPEPIDINE HIBENZATE
  4. LYRICA [Suspect]
     Active Substance: PREGABALIN
     Indication: INTERVERTEBRAL DISC PROTRUSION
  5. ISEPACIN [Concomitant]
     Route: 048
  6. THEODUR /JPN/ [Concomitant]
  7. ADOAIR [Concomitant]
     Active Substance: FLUTICASONE PROPIONATE\SALMETEROL XINAFOATE
  8. PARIET [Concomitant]
     Active Substance: RABEPRAZOLE SODIUM
  9. CODEINE PHOSPHATE [Concomitant]
     Active Substance: CODEINE PHOSPHATE
  10. OPALMON [Concomitant]
     Active Substance: LIMAPROST
  11. DEPAS [Concomitant]
     Active Substance: ETIZOLAM
  12. MEDICON [Concomitant]
     Active Substance: DEXTROMETHORPHAN HYDROBROMIDE
  13. PURSENNID [Concomitant]
     Active Substance: SENNOSIDES A AND B CALCIUM
  14. MINODRONIC ACID [Concomitant]
     Active Substance: MINODRONIC ACID
  15. LYRICA [Suspect]
     Active Substance: PREGABALIN
     Indication: NEURALGIA
     Dosage: 75 MG, 1X/DAY
     Route: 048
     Dates: start: 2014, end: 20140402
  16. ULTRACET [Concomitant]
     Active Substance: ACETAMINOPHEN\TRAMADOL HYDROCHLORIDE
  17. HYPEN [Concomitant]
     Active Substance: ETODOLAC

REACTIONS (7)
  - Fibrinous bronchitis [Recovered/Resolved]
  - Pleurisy [Recovered/Resolved]
  - Cough [Recovered/Resolved]
  - Oropharyngeal pain [Recovered/Resolved]
  - Pneumonia [Recovered/Resolved]
  - Productive cough [Recovered/Resolved]
  - Asthma [Recovered/Resolved]

NARRATIVE: CASE EVENT DATE: 20140322
